FAERS Safety Report 4804503-7 (Version None)
Quarter: 2005Q4

REPORT INFORMATION
  Report Type: 
  Country: None (occurrence: None)
  Receive Date: 20051017
  Receipt Date: 20050928
  Transmission Date: 20060501
  Serious: Yes (Hospitalization)
  Sender: FDA-Public Use
  Company Number: DSA_27282_2005

PATIENT
  Age: 84 Year
  Sex: Male

DRUGS (8)
  1. DILTIAZEM [Suspect]
     Indication: ANGINA PECTORIS
     Dosage: 300 MG Q DAY PO
     Route: 048
     Dates: start: 19980321, end: 20050901
  2. DILTIAZEM [Suspect]
     Indication: HYPERTENSION
     Dosage: 300 MG Q DAY PO
     Route: 048
     Dates: start: 19980321, end: 20050901
  3. ARICEPT [Suspect]
     Dosage: 10 MG Q DAY
     Dates: start: 20050614, end: 20050901
  4. BENAZEPRIL HCL [Concomitant]
  5. KARDEGIC [Concomitant]
  6. IKOREL [Concomitant]
  7. TAHOR [Concomitant]
  8. TADENAN [Concomitant]

REACTIONS (4)
  - BLOOD PRESSURE SYSTOLIC DECREASED [None]
  - FALL [None]
  - HEART RATE DECREASED [None]
  - LOSS OF CONSCIOUSNESS [None]
